FAERS Safety Report 17823595 (Version 1)
Quarter: 2020Q2

REPORT INFORMATION
  Report Type: Spontaneous
  Country: US (occurrence: US)
  Receive Date: 20200526
  Receipt Date: 20200526
  Transmission Date: 20200714
  Serious: No
  Sender: FDA-Public Use
  Company Number: US-PFIZER INC-2020203525

PATIENT
  Age: 76 Year
  Sex: Male
  Weight: 88.45 kg

DRUGS (1)
  1. VYNDAQEL [Suspect]
     Active Substance: TAFAMIDIS MEGLUMINE
     Indication: AMYLOIDOSIS
     Dosage: 20 MG, 4X/DAY
     Route: 048

REACTIONS (3)
  - Abdominal pain upper [Unknown]
  - Abdominal distension [Unknown]
  - Off label use [Unknown]
